FAERS Safety Report 7244631-2 (Version None)
Quarter: 2011Q1

REPORT INFORMATION
  Report Type: 
  Country: None (occurrence: None)
  Receive Date: 20110125
  Receipt Date: 20110118
  Transmission Date: 20110831
  Serious: Yes (Hospitalization)
  Sender: FDA-Public Use
  Company Number: GB-MERCK-1101GBR00072

PATIENT
  Age: 61 Year
  Sex: Female

DRUGS (2)
  1. SINEMET [Suspect]
     Route: 065
  2. SINEMET [Suspect]
     Route: 065

REACTIONS (1)
  - HYPERSENSITIVITY [None]
